FAERS Safety Report 26022716 (Version 1)
Quarter: 2025Q4

REPORT INFORMATION
  Report Type: Spontaneous
  Country: US (occurrence: None)
  Receive Date: 20251110
  Receipt Date: 20251110
  Transmission Date: 20260118
  Serious: Yes (Death)
  Sender: AMERICAN REGENT
  Company Number: US-AMERICAN REGENT INC-2025004018

PATIENT
  Sex: Male

DRUGS (1)
  1. FERRIC CARBOXYMALTOSE [Suspect]
     Active Substance: FERRIC CARBOXYMALTOSE
     Indication: Iron deficiency
     Dosage: UNK, SINGLE
     Route: 065
     Dates: start: 20251021, end: 20251021

REACTIONS (3)
  - Hypoxia [Fatal]
  - Chronic respiratory failure [Fatal]
  - Interstitial lung disease [Fatal]

NARRATIVE: CASE EVENT DATE: 20250101
